FAERS Safety Report 13123367 (Version 1)
Quarter: 2017Q1

REPORT INFORMATION
  Report Type: Spontaneous
  Country: US (occurrence: US)
  Receive Date: 20170117
  Receipt Date: 20170117
  Transmission Date: 20170428
  Serious: No
  Sender: FDA-Public Use
  Company Number: US-ALLERGAN-1666315US

PATIENT
  Age: 48 Year
  Sex: Male

DRUGS (1)
  1. DALVANCE [Suspect]
     Active Substance: DALBAVANCIN
     Indication: SKIN INFECTION
     Dosage: UNK
     Route: 042

REACTIONS (2)
  - Muscle spasms [Unknown]
  - Chest discomfort [Unknown]
